FAERS Safety Report 4297346-7 (Version None)
Quarter: 2004Q1

REPORT INFORMATION
  Report Type: 
  Country: None (occurrence: None)
  Receive Date: 20040213
  Receipt Date: 20040205
  Transmission Date: 20041129
  Serious: Yes (Hospitalization, Other)
  Sender: FDA-Public Use
  Company Number: HQWYE827205FEB04

PATIENT
  Age: 3 Year
  Sex: Male

DRUGS (3)
  1. OROKEN (CEFIXIME, UNSPEC) [Suspect]
     Route: 048
     Dates: start: 19960603
  2. MUCOMYST [Concomitant]
  3. PIVALONE (TIXOCORTOL PIVALATE) [Concomitant]

REACTIONS (3)
  - EOSINOPHIL COUNT ABNORMAL [None]
  - RASH GENERALISED [None]
  - RASH MACULO-PAPULAR [None]
